FAERS Safety Report 10250827 (Version 1)
Quarter: 2014Q2

REPORT INFORMATION
  Report Type: Report from Study
  Country: US (occurrence: US)
  Receive Date: 20140620
  Receipt Date: 20140620
  Transmission Date: 20141212
  Serious: Yes (Other)
  Sender: FDA-Public Use
  Company Number: US-BAYER-2014-088936

PATIENT
  Age: 75 Year
  Sex: Female

DRUGS (3)
  1. ACETYLSALICYLIC ACID({=100 MG) [Suspect]
     Dosage: 81 MG, UNK
     Route: 048
  2. DABIGATRAN [Interacting]
     Indication: ANTICOAGULANT THERAPY
     Dosage: 150 MG, BID
     Route: 048
  3. DABIGATRAN [Interacting]
     Indication: ATRIAL FIBRILLATION

REACTIONS (2)
  - Cerebral haemorrhage [None]
  - Drug interaction [None]
